FAERS Safety Report 18260200 (Version 3)
Quarter: 2020Q4

REPORT INFORMATION
  Report Type: Report from Study
  Country: US (occurrence: US)
  Receive Date: 20200913
  Receipt Date: 20201113
  Transmission Date: 20210113
  Serious: Yes (Hospitalization)
  Sender: FDA-Public Use
  Company Number: US-BIOGEN-2020BI00921054

PATIENT
  Sex: Female

DRUGS (2)
  1. TYSABRI [Suspect]
     Active Substance: NATALIZUMAB
     Indication: MULTIPLE SCLEROSIS
     Route: 065
     Dates: start: 20070110
  2. TYSABRI [Suspect]
     Active Substance: NATALIZUMAB
     Route: 065

REACTIONS (7)
  - Agraphia [Not Recovered/Not Resolved]
  - Pain [Unknown]
  - Musculoskeletal disorder [Unknown]
  - Gait inability [Not Recovered/Not Resolved]
  - Dysarthria [Not Recovered/Not Resolved]
  - Fall [Recovered/Resolved]
  - Mobility decreased [Not Recovered/Not Resolved]
